FAERS Safety Report 17225252 (Version 4)
Quarter: 2020Q1

REPORT INFORMATION
  Report Type: Spontaneous
  Country: US (occurrence: US)
  Receive Date: 20200102
  Receipt Date: 20200312
  Transmission Date: 20200409
  Serious: Yes (Hospitalization, Other)
  Sender: FDA-Public Use
  Company Number: US-PFIZER INC-2019560559

PATIENT
  Age: 61 Year
  Sex: Female
  Weight: 86 kg

DRUGS (6)
  1. BOSULIF [Suspect]
     Active Substance: BOSUTINIB MONOHYDRATE
     Dosage: 200 MG, 1X/DAY
     Route: 048
  2. BOSULIF [Suspect]
     Active Substance: BOSUTINIB MONOHYDRATE
     Dosage: 200 MG, 1X/DAY
     Route: 048
     Dates: start: 20191209, end: 201912
  3. LINZESS [Concomitant]
     Active Substance: LINACLOTIDE
     Dosage: 72 MG, 3X/DAY
     Route: 048
  4. BOSULIF [Suspect]
     Active Substance: BOSUTINIB MONOHYDRATE
     Dosage: 100 MG, 1X/DAY
     Route: 048
     Dates: start: 20191125, end: 201912
  5. BOSULIF [Suspect]
     Active Substance: BOSUTINIB MONOHYDRATE
     Dosage: 300 MG, 1X/DAY
     Route: 048
     Dates: start: 20191224, end: 201912
  6. BOSULIF [Suspect]
     Active Substance: BOSUTINIB MONOHYDRATE
     Indication: CHRONIC MYELOID LEUKAEMIA
     Dosage: 200 MG, 1X/DAY
     Route: 048
     Dates: start: 201909

REACTIONS (24)
  - Rash [Not Recovered/Not Resolved]
  - Fatigue [Not Recovered/Not Resolved]
  - Blood glucose increased [Unknown]
  - Malaise [Not Recovered/Not Resolved]
  - Alanine aminotransferase increased [Unknown]
  - Calcium deficiency [Unknown]
  - Dehydration [Not Recovered/Not Resolved]
  - Protein deficiency [Unknown]
  - Abdominal discomfort [Not Recovered/Not Resolved]
  - Asthenia [Not Recovered/Not Resolved]
  - Ventricular extrasystoles [Unknown]
  - Gastrointestinal pain [Not Recovered/Not Resolved]
  - Headache [Not Recovered/Not Resolved]
  - Diarrhoea [Not Recovered/Not Resolved]
  - Myalgia [Not Recovered/Not Resolved]
  - Brain injury [Recovered/Resolved]
  - Muscle disorder [Not Recovered/Not Resolved]
  - Arthralgia [Not Recovered/Not Resolved]
  - Liver disorder [Unknown]
  - Aspartate aminotransferase increased [Unknown]
  - Arteriospasm coronary [Unknown]
  - Cognitive disorder [Not Recovered/Not Resolved]
  - Palpitations [Not Recovered/Not Resolved]
  - Constipation [Not Recovered/Not Resolved]

NARRATIVE: CASE EVENT DATE: 2019
